FAERS Safety Report 26011714 (Version 2)
Quarter: 2025Q4

REPORT INFORMATION
  Report Type: Spontaneous
  Country: EU (occurrence: EU)
  Receive Date: 20251107
  Receipt Date: 20251126
  Transmission Date: 20260117
  Serious: Yes (Other)
  Sender: AUROBINDO
  Company Number: EU-KRKA-PL2019K10410LIT

PATIENT
  Age: 9 Year
  Sex: Male

DRUGS (11)
  1. MYCOPHENOLATE MOFETIL [Suspect]
     Active Substance: MYCOPHENOLATE MOFETIL
     Indication: Product used for unknown indication
     Dosage: UNK
     Route: 065
  2. CYCLOSPORINE [Suspect]
     Active Substance: CYCLOSPORINE
     Indication: Prophylaxis
     Dosage: UNK
     Route: 065
  3. CYCLOSPORINE [Suspect]
     Active Substance: CYCLOSPORINE
     Indication: Prophylaxis against graft versus host disease
  4. CIDOFOVIR [Suspect]
     Active Substance: CIDOFOVIR
     Indication: BK virus infection
     Dosage: UNK
  5. CIDOFOVIR [Suspect]
     Active Substance: CIDOFOVIR
     Indication: Viral haemorrhagic cystitis
     Dosage: UNK
  6. CIDOFOVIR [Suspect]
     Active Substance: CIDOFOVIR
     Indication: Viraemia
     Dosage: 5 MILLIGRAM/KILOGRAM
  7. CIDOFOVIR [Suspect]
     Active Substance: CIDOFOVIR
     Indication: Adenoviral haemorrhagic cystitis
  8. FOSCARNET [Suspect]
     Active Substance: FOSCARNET
     Indication: Cytomegalovirus infection
     Dosage: UNK
  9. NALBUPHINE [Concomitant]
     Active Substance: NALBUPHINE
     Indication: Pain
     Dosage: UNK
  10. CIPROFLOXACIN [Concomitant]
     Active Substance: CIPROFLOXACIN
     Indication: BK virus infection
     Dosage: UNK
     Route: 065
  11. CIPROFLOXACIN [Concomitant]
     Active Substance: CIPROFLOXACIN
     Indication: Viruria

REACTIONS (8)
  - Cytomegalovirus infection [Unknown]
  - Pain [Unknown]
  - Cystitis haemorrhagic [Unknown]
  - Acute kidney injury [Recovering/Resolving]
  - Renal impairment [Recovered/Resolved]
  - Haematuria [Recovered/Resolved]
  - Drug ineffective [Unknown]
  - Off label use [Unknown]
